FAERS Safety Report 9317398 (Version 1)
Quarter: 2013Q2

REPORT INFORMATION
  Report Type: Spontaneous
  Country: US (occurrence: None)
  Receive Date: 20130528
  Receipt Date: 20130528
  Transmission Date: 20140414
  Serious: No
  Sender: FDA-Public Use
  Company Number: None

PATIENT
  Age: 41 Year
  Sex: Female

DRUGS (1)
  1. AMBIEN (GENERIC) 10MG [Suspect]
     Dosage: AT NIGHT
     Route: 048
     Dates: start: 200811, end: 201102

REACTIONS (1)
  - Drug ineffective [None]
